FAERS Safety Report 19803820 (Version 1)
Quarter: 2021Q3

REPORT INFORMATION
  Report Type: Spontaneous
  Country: PL (occurrence: PL)
  Receive Date: 20210908
  Receipt Date: 20210908
  Transmission Date: 20211014
  Serious: Yes (Hospitalization, Other)
  Sender: FDA-Public Use
  Company Number: PL-MYLANLABS-2021M1054277

PATIENT
  Age: 54 Year
  Sex: Female

DRUGS (10)
  1. AMLODIPINE [Interacting]
     Active Substance: AMLODIPINE BESYLATE
     Indication: HYPERTENSION
     Dosage: 10 MILLIGRAM, QD (10 MG, PER DAY)
     Route: 065
  2. PERINDOPRIL [Interacting]
     Active Substance: PERINDOPRIL
     Indication: HYPERTENSION
     Dosage: UNK
  3. NEBIVOLOL. [Interacting]
     Active Substance: NEBIVOLOL
     Indication: HYPERTENSION
     Dosage: 5 MILLIGRAM, QD (5 MG, PER DAY)
     Route: 065
  4. ATORVASTATIN [Interacting]
     Active Substance: ATORVASTATIN
     Indication: DYSLIPIDAEMIA
     Dosage: 40 MILLIGRAM, QD (40 MG, PER DAY)
     Route: 065
  5. GINKGO BILOBA [Interacting]
     Active Substance: GINKGO
     Indication: TOXICITY TO VARIOUS AGENTS
     Dosage: 240 MILLIGRAM, QD (240 MG, PER DAY)
     Route: 065
  6. GINKGO BILOBA [Interacting]
     Active Substance: GINKGO
     Indication: SOMNOLENCE
  7. METOPROLOL. [Suspect]
     Active Substance: METOPROLOL
     Indication: PRODUCT USED FOR UNKNOWN INDICATION
     Dosage: UNK
     Route: 065
  8. GINKGO BILOBA EXTRACT /01003110/ [Interacting]
     Active Substance: GINKGO
     Indication: PRODUCT USED FOR UNKNOWN INDICATION
     Dosage: UNK
  9. CELECOXIB. [Interacting]
     Active Substance: CELECOXIB
     Indication: BACK PAIN
     Dosage: 200 MILLIGRAM, QD
     Route: 065
  10. RISPERIDONE. [Interacting]
     Active Substance: RISPERIDONE
     Indication: SCHIZOPHRENIA
     Dosage: 4 MILLIGRAM, QD (4 MG/24 H)
     Route: 065

REACTIONS (5)
  - Bradycardia [Recovered/Resolved]
  - Tongue oedema [Recovered/Resolved]
  - Lip oedema [Unknown]
  - Off label use [Unknown]
  - Drug interaction [Recovered/Resolved]
